FAERS Safety Report 6262962-X (Version None)
Quarter: 2009Q3

REPORT INFORMATION
  Report Type: 
  Country: None (occurrence: None)
  Receive Date: 20090708
  Receipt Date: 20090618
  Transmission Date: 20100115
  Serious: Yes (Other)
  Sender: FDA-Public Use
  Company Number: GB-DEXPHARM-20090929

PATIENT
  Sex: Female

DRUGS (2)
  1. DICLOFENAC SODIUM [Suspect]
     Indication: PAIN
  2. XARELTO [Suspect]
     Indication: KNEE ARTHROPLASTY
     Dosage: DOSE: 10 MG MILLIGRAM(S) SEP. DOSAGES / INTERVAL: 1 IN 1  DAY
     Dates: start: 20080507, end: 20090513

REACTIONS (7)
  - ABDOMINAL DISCOMFORT [None]
  - CONTUSION [None]
  - GASTROOESOPHAGEAL REFLUX DISEASE [None]
  - JOINT SWELLING [None]
  - POOR QUALITY SLEEP [None]
  - POST PROCEDURAL HAEMORRHAGE [None]
  - WOUND SECRETION [None]
